FAERS Safety Report 9162358 (Version 1)
Quarter: 2013Q1

REPORT INFORMATION
  Report Type: Spontaneous
  Country: GB (occurrence: None)
  Receive Date: 20130225
  Receipt Date: 20130225
  Transmission Date: 20140127
  Serious: Yes (Hospitalization, Disabling)
  Sender: FDA-Public Use
  Company Number: 2013-02568

PATIENT
  Age: 18 Year
  Sex: Female

DRUGS (5)
  1. AMITRIPTYLINE [Suspect]
     Indication: HEADACHE
     Dosage: 10-30MG ONCE DAILY, ORAL
     Route: 048
     Dates: start: 20120112, end: 20120215
  2. NORTRIPTYLINE HYDROCHLORIDE [Suspect]
     Indication: HEADACHE
     Dosage: 10-30MG ONCE DAILY, ORAL
     Route: 048
     Dates: start: 20120215, end: 20121122
  3. FLUOXETINE HYDROCHLORIDE [Suspect]
     Indication: DEPRESSION
     Route: 048
     Dates: start: 20111005, end: 20121220
  4. LANSOPRAZOLE (LANSOPRAZOLE) [Concomitant]
  5. LAXIDO (ELECTROLYTES NOS, MACROGOL 3350) [Concomitant]

REACTIONS (4)
  - Dizziness [None]
  - Muscular weakness [None]
  - Syncope [None]
  - Gastrooesophageal reflux disease [None]
